FAERS Safety Report 4483356-3 (Version None)
Quarter: 2004Q4

REPORT INFORMATION
  Report Type: 
  Country: None (occurrence: None)
  Receive Date: 20041020
  Receipt Date: 20041005
  Transmission Date: 20050328
  Serious: Yes (Death, Hospitalization)
  Sender: FDA-Public Use
  Company Number: GBS040114255

PATIENT
  Age: 90 Year
  Sex: Female
  Weight: 82 kg

DRUGS (7)
  1. FLUOXETINE [Suspect]
     Dosage: 20 MG/1 DAY
     Route: 046
  2. ASPIRIN [Concomitant]
  3. MELOXICAM [Concomitant]
  4. PREDNISONE [Concomitant]
  5. BURINEX A [Concomitant]
  6. ENALAPRIL [Concomitant]
  7. BELLADONNA EXTRACT [Concomitant]

REACTIONS (1)
  - MELAENA [None]
